FAERS Safety Report 8216014-X (Version None)
Quarter: 2012Q1

REPORT INFORMATION
  Report Type: 
  Country: None (occurrence: None)
  Receive Date: 20120316
  Receipt Date: 20120314
  Transmission Date: 20120608
  Serious: No
  Sender: FDA-Public Use
  Company Number: US-BAYER-2012-025574

PATIENT
  Sex: Male

DRUGS (1)
  1. AVELOX [Suspect]

REACTIONS (2)
  - HYPERSENSITIVITY [None]
  - SKIN REACTION [None]
